FAERS Safety Report 22064161 (Version 1)
Quarter: 2023Q1

REPORT INFORMATION
  Report Type: Spontaneous
  Country: US (occurrence: None)
  Receive Date: 20230304
  Receipt Date: 20230304
  Transmission Date: 20230417
  Serious: Yes (Disabling, Other)
  Sender: FDA-Public Use
  Company Number: None

PATIENT
  Age: 56 Year
  Sex: Female
  Weight: 63 kg

DRUGS (6)
  1. ALPRAZOLAM [Suspect]
     Active Substance: ALPRAZOLAM
     Indication: Insomnia
  2. ZOLOFT [Concomitant]
     Active Substance: SERTRALINE HYDROCHLORIDE
  3. BACLOFEN [Concomitant]
     Active Substance: BACLOFEN
  4. IMITREX [Concomitant]
     Active Substance: SUMATRIPTAN SUCCINATE
  5. OXYCODONE [Concomitant]
     Active Substance: OXYCODONE
  6. METHADONE [Concomitant]
     Active Substance: METHADONE HYDROCHLORIDE

REACTIONS (28)
  - Migraine [None]
  - Headache [None]
  - Dizziness [None]
  - Abdominal pain upper [None]
  - Vision blurred [None]
  - Drug withdrawal syndrome [None]
  - Abdominal pain [None]
  - Drug intolerance [None]
  - Seizure [None]
  - Akathisia [None]
  - Major depression [None]
  - Suicidal ideation [None]
  - Aggression [None]
  - Anger [None]
  - Muscle spasms [None]
  - Pain [None]
  - Treatment noncompliance [None]
  - Incorrect dose administered [None]
  - Neck pain [None]
  - Arthralgia [None]
  - Gait inability [None]
  - Depressed level of consciousness [None]
  - Dysphagia [None]
  - Diplopia [None]
  - Agoraphobia [None]
  - Obsessive-compulsive disorder [None]
  - Impaired driving ability [None]
  - Burning sensation [None]

NARRATIVE: CASE EVENT DATE: 20190205
